FAERS Safety Report 5756622-9 (Version None)
Quarter: 2008Q2

REPORT INFORMATION
  Report Type: 
  Country: None (occurrence: None)
  Receive Date: 20080603
  Receipt Date: 20080521
  Transmission Date: 20081010
  Serious: Yes (Congenital Anomaly)
  Sender: FDA-Public Use
  Company Number: AR-ELI_LILLY_AND_COMPANY-AR200805005029

PATIENT
  Weight: 3.83 kg

DRUGS (3)
  1. CYMBALTA [Suspect]
     Indication: DEPRESSION
     Dosage: 30 MG, DAILY (1/D)
     Route: 048
     Dates: start: 20070301, end: 20080101
  2. FOLIC ACID [Concomitant]
     Indication: PREGNANCY
     Dosage: UNK, UNKNOWN
     Route: 065
  3. ALPRAZOLAM [Concomitant]
     Indication: ANXIETY
     Dosage: UNK, AS NEEDED
     Route: 065

REACTIONS (2)
  - DRUG EXPOSURE DURING PREGNANCY [None]
  - HYPOSPADIAS [None]
